FAERS Safety Report 6977727-0 (Version None)
Quarter: 2010Q3

REPORT INFORMATION
  Report Type: 
  Country: None (occurrence: None)
  Receive Date: 20100913
  Receipt Date: 20100901
  Transmission Date: 20110219
  Serious: No
  Sender: FDA-Public Use
  Company Number: US-BIOGENIDEC-2010BI030908

PATIENT
  Sex: Female

DRUGS (4)
  1. TYSABRI [Suspect]
     Indication: MULTIPLE SCLEROSIS
     Route: 042
     Dates: start: 20070601, end: 20080301
  2. TYSABRI [Suspect]
     Route: 042
     Dates: start: 20080601, end: 20090301
  3. TYSABRI [Suspect]
     Route: 042
     Dates: start: 20090601, end: 20100301
  4. TYSABRI [Suspect]
     Route: 042
     Dates: start: 20100601

REACTIONS (3)
  - MULTIPLE SCLEROSIS [None]
  - MUSCULAR WEAKNESS [None]
  - SENSATION OF HEAVINESS [None]
